FAERS Safety Report 20009570 (Version 1)
Quarter: 2021Q4

REPORT INFORMATION
  Report Type: Spontaneous
  Country: US (occurrence: US)
  Receive Date: 20211028
  Receipt Date: 20211028
  Transmission Date: 20220303
  Serious: Yes (Hospitalization, Disabling)
  Sender: FDA-Public Use
  Company Number: None

PATIENT
  Age: 27 Year
  Sex: Female
  Weight: 121.5 kg

DRUGS (1)
  1. CIPROFLOXACIN [Suspect]
     Active Substance: CIPROFLOXACIN
     Indication: Urinary tract infection
     Route: 048
     Dates: start: 20211027, end: 20211028

REACTIONS (5)
  - Muscle twitching [None]
  - Pain in extremity [None]
  - Paraesthesia [None]
  - Restlessness [None]
  - Pain [None]

NARRATIVE: CASE EVENT DATE: 20211028
